FAERS Safety Report 7656055-4 (Version None)
Quarter: 2011Q3

REPORT INFORMATION
  Report Type: 
  Country: None (occurrence: None)
  Receive Date: 20110804
  Receipt Date: 20110722
  Transmission Date: 20111222
  Serious: Yes (Death)
  Sender: FDA-Public Use
  Company Number: US-ELI_LILLY_AND_COMPANY-US201105005381

PATIENT
  Sex: Female
  Weight: 92.517 kg

DRUGS (1)
  1. ZYPREXA [Suspect]
     Indication: SCHIZOPHRENIA, PARANOID TYPE
     Dosage: 30 MG, QD
     Route: 048
     Dates: start: 20100720, end: 20110430

REACTIONS (2)
  - OVERDOSE [None]
  - NEOPLASM MALIGNANT [None]
